FAERS Safety Report 9845069 (Version 1)
Quarter: 2014Q1

REPORT INFORMATION
  Report Type: Spontaneous
  Country: US (occurrence: None)
  Receive Date: 20140123
  Receipt Date: 20140123
  Transmission Date: 20141002
  Serious: Yes (Other)
  Sender: FDA-Public Use
  Company Number: None

PATIENT
  Age: 33 Year
  Sex: Female
  Weight: 93.44 kg

DRUGS (1)
  1. CIPROFLOXACIN [Suspect]
     Indication: URINARY TRACT INFECTION
     Dosage: CIPROFLOXIN 2X A DAY TWICE DAILY TAKEN BY MOUTH
     Route: 048
     Dates: start: 20131204, end: 20131205

REACTIONS (4)
  - Burning sensation [None]
  - Tendonitis [None]
  - Gait disturbance [None]
  - Dysstasia [None]
